FAERS Safety Report 7647997-4 (Version None)
Quarter: 2011Q3

REPORT INFORMATION
  Report Type: 
  Country: None (occurrence: None)
  Receive Date: 20110726
  Receipt Date: 20110712
  Transmission Date: 20111222
  Serious: Yes (Hospitalization)
  Sender: FDA-Public Use
  Company Number: 1000022258

PATIENT
  Age: 91 Year
  Sex: Female

DRUGS (7)
  1. XALATAN [Concomitant]
  2. MEMANTINE HYDROCHLORIDE [Suspect]
     Indication: DEMENTIA ALZHEIMER'S TYPE
     Dosage: 20 MG (20 MG, 1 IN 1 D),ORAL
     Route: 048
     Dates: start: 20110519, end: 20110614
  3. FUROSEMIDE [Concomitant]
  4. SERETIDE (FLUTICASONE, SALMETEROL) (FLUTICASONE, SALMETEROL) [Concomitant]
  5. DIPIPERON (PIPAMPERONE HYDROCHLORIDE) [Concomitant]
  6. AZOPT (BRINZOLAMIDE) (BRINZOLAMIDE) [Concomitant]
  7. ENALAPRIL (ENALAPRIL) (TABLETS) (ENALAPRIL) [Concomitant]

REACTIONS (2)
  - HYPERVENTILATION [None]
  - DELIRIUM [None]
